FAERS Safety Report 12241264 (Version 2)
Quarter: 2016Q2

REPORT INFORMATION
  Report Type: Spontaneous
  Country: IT (occurrence: IT)
  Receive Date: 20160406
  Receipt Date: 20160425
  Transmission Date: 20160815
  Serious: Yes (Hospitalization)
  Sender: FDA-Public Use
  Company Number: IT-AUROBINDO-AUR-APL-2016-04201

PATIENT
  Age: -1 Year
  Sex: Female

DRUGS (3)
  1. PAROXETINE 20MG [Suspect]
     Active Substance: PAROXETINE
     Indication: HALLUCINATION, AUDITORY
     Dosage: 1 DF, DAILY
     Route: 064
  2. LORAZEPAM. [Suspect]
     Active Substance: LORAZEPAM
     Indication: HALLUCINATION, VISUAL
     Dosage: 1 DF, DAILY
     Route: 064
  3. DELTACORTENE [Suspect]
     Active Substance: PREDNISONE
     Indication: PRODUCT USED FOR UNKNOWN INDICATION
     Dosage: 12.5 MG, DAILY
     Route: 064

REACTIONS (5)
  - Neonatal behavioural syndrome [Recovered/Resolved]
  - Hypoglycaemia neonatal [Recovered/Resolved]
  - Premature baby [Recovered/Resolved]
  - Tachypnoea [Recovered/Resolved]
  - Foetal exposure during pregnancy [Recovered/Resolved]

NARRATIVE: CASE EVENT DATE: 20150414
